FAERS Safety Report 7324637-5 (Version None)
Quarter: 2011Q1

REPORT INFORMATION
  Report Type: 
  Country: None (occurrence: None)
  Receive Date: 20110301
  Receipt Date: 20110216
  Transmission Date: 20110831
  Serious: Yes (Other)
  Sender: FDA-Public Use
  Company Number: SE-MYLANLABS-2011S1003325

PATIENT
  Sex: Female

DRUGS (2)
  1. TAMOXIFEN MYLAN [Suspect]
     Indication: BREAST CANCER
     Route: 048
  2. TAMOXIFEN CITRATE [Suspect]
     Indication: BREAST CANCER

REACTIONS (3)
  - SLEEP DISORDER [None]
  - DEPRESSION [None]
  - WEIGHT INCREASED [None]
